FAERS Safety Report 7116227-4 (Version None)
Quarter: 2010Q4

REPORT INFORMATION
  Report Type: 
  Country: None (occurrence: None)
  Receive Date: 20101122
  Receipt Date: 20101117
  Transmission Date: 20110411
  Serious: Yes (Life-Threatening)
  Sender: FDA-Public Use
  Company Number: FR-ASTRAZENECA-2010SE35437

PATIENT
  Age: 20497 Day
  Sex: Male
  Weight: 81 kg

DRUGS (3)
  1. XYLOCAINE [Suspect]
     Indication: ANAESTHESIA
     Route: 050
     Dates: start: 20100615, end: 20100615
  2. XYLOCAINE [Suspect]
     Indication: EPICONDYLITIS
     Route: 050
     Dates: start: 20100615, end: 20100615
  3. HYDROCORTANCYL [Suspect]
     Indication: EPICONDYLITIS
     Dosage: 125 MG/ML, 1 ML WITH UNKNOWN FREQUENCY
     Dates: start: 20100615, end: 20100615

REACTIONS (3)
  - ANGIOEDEMA [None]
  - FEELING COLD [None]
  - GENERALISED ERYTHEMA [None]
